FAERS Safety Report 16323309 (Version 1)
Quarter: 2019Q2

REPORT INFORMATION
  Report Type: Spontaneous
  Country: US (occurrence: US)
  Receive Date: 20190517
  Receipt Date: 20190517
  Transmission Date: 20190711
  Serious: No
  Sender: FDA-Public Use
  Company Number: US-APOTEX-2018AP025651

PATIENT
  Age: 68 Year
  Sex: Male

DRUGS (2)
  1. IMIQUIMOD. [Suspect]
     Active Substance: IMIQUIMOD
     Indication: POROKERATOSIS
     Dosage: UNK UNK, QD (ONCE DAILY FIVE TIMES A WEEK)
     Route: 065
  2. IMIQUIMOD. [Suspect]
     Active Substance: IMIQUIMOD
     Indication: BASAL CELL CARCINOMA

REACTIONS (1)
  - Adverse event [Unknown]
